FAERS Safety Report 18705347 (Version 2)
Quarter: 2021Q1

REPORT INFORMATION
  Report Type: Other
  Country: US (occurrence: US)
  Receive Date: 20210106
  Receipt Date: 20210223
  Transmission Date: 20210419
  Serious: Yes (Death)
  Sender: FDA-Public Use
  Company Number: US-ROCHE-2744851

PATIENT
  Age: 78 Year
  Sex: Male

DRUGS (1)
  1. HERCEPTIN [Suspect]
     Active Substance: TRASTUZUMAB
     Indication: GALLBLADDER CANCER
     Dosage: INFUSE 815MG INTRAVENOUSLY FOR A ONE TIME DOSE
     Route: 041
     Dates: start: 20201222

REACTIONS (3)
  - Off label use [Unknown]
  - Sepsis [Fatal]
  - Intentional product use issue [Unknown]

NARRATIVE: CASE EVENT DATE: 20201229
